FAERS Safety Report 14006731 (Version 2)
Quarter: 2018Q4

REPORT INFORMATION
  Report Type: Report from Study
  Country: JP (occurrence: JP)
  Receive Date: 20170925
  Receipt Date: 20181011
  Transmission Date: 20190204
  Serious: Yes (Hospitalization)
  Sender: FDA-Public Use
  Company Number: JP-VIFOR (INTERNATIONAL) INC.-VIT-2017-09914

PATIENT
  Age: 85 Year
  Sex: Male
  Weight: 55.3 kg

DRUGS (24)
  1. MYOCOR [Concomitant]
     Active Substance: NITROGLYCERIN
     Route: 048
  2. VELPHORO [Suspect]
     Active Substance: FERRIC OXYHYDROXIDE
     Indication: HYPERPHOSPHATAEMIA
     Route: 048
     Dates: start: 20170123, end: 20170219
  3. VELPHORO [Suspect]
     Active Substance: FERRIC OXYHYDROXIDE
     Route: 048
     Dates: start: 20170220, end: 20170312
  4. CYTOTEC [Concomitant]
     Active Substance: MISOPROSTOL
     Route: 048
  5. TAKELDA [Concomitant]
     Active Substance: ASPIRIN\LANSOPRAZOLE
     Route: 048
  6. NESP [Concomitant]
     Active Substance: DARBEPOETIN ALFA
     Dates: start: 20170127, end: 20170217
  7. NESP [Concomitant]
     Active Substance: DARBEPOETIN ALFA
     Dates: start: 20170224, end: 20170324
  8. LOXOPROFEN EMEC [Concomitant]
     Active Substance: LOXOPROFEN
     Route: 048
  9. ANTEBATE [Concomitant]
     Active Substance: BETAMETHASONE DIPROPIONATE
     Route: 050
  10. CARVEDILOL. [Concomitant]
     Active Substance: CARVEDILOL
     Route: 048
     Dates: end: 20170329
  11. LOXOPROFEN [Concomitant]
     Active Substance: LOXOPROFEN
     Route: 050
  12. ATORVASTATIN [Concomitant]
     Active Substance: ATORVASTATIN
     Route: 048
  13. EFIENT [Concomitant]
     Active Substance: PRASUGREL HYDROCHLORIDE
     Route: 048
  14. ZOLPIDEM TARTRATE. [Concomitant]
     Active Substance: ZOLPIDEM TARTRATE
     Route: 048
  15. AMLODIPINE [Concomitant]
     Active Substance: AMLODIPINE BESYLATE
     Route: 048
  16. CARVEDILOL. [Concomitant]
     Active Substance: CARVEDILOL
     Route: 048
     Dates: start: 20170330, end: 20170426
  17. FESIN [Concomitant]
     Active Substance: IRON SUCROSE
     Dates: end: 20170403
  18. MICARDIS [Concomitant]
     Active Substance: TELMISARTAN
     Route: 048
  19. VELPHORO [Suspect]
     Active Substance: FERRIC OXYHYDROXIDE
     Route: 048
     Dates: start: 20170313, end: 20170409
  20. CALCITRIOL. [Concomitant]
     Active Substance: CALCITRIOL
     Route: 048
  21. LYRICA [Concomitant]
     Active Substance: PREGABALIN
     Route: 048
  22. SENNOSIDE A+B CALCIUM [Concomitant]
     Active Substance: SENNOSIDES A AND B
     Route: 048
  23. MOHRUS [Concomitant]
     Active Substance: KETOPROFEN
     Indication: MYALGIA
     Route: 050
  24. NESP [Concomitant]
     Active Substance: DARBEPOETIN ALFA
     Dates: end: 20170113

REACTIONS (2)
  - Angina pectoris [Not Recovered/Not Resolved]
  - Diarrhoea [Recovering/Resolving]

NARRATIVE: CASE EVENT DATE: 20170221
